FAERS Safety Report 24659232 (Version 1)
Quarter: 2024Q4

REPORT INFORMATION
  Report Type: Spontaneous
  Country: US (occurrence: None)
  Receive Date: 20241125
  Receipt Date: 20241125
  Transmission Date: 20250114
  Serious: Yes (Hospitalization)
  Sender: Public
  Company Number: None

PATIENT
  Sex: Male

DRUGS (4)
  1. AMBRISENTAN [Suspect]
     Active Substance: AMBRISENTAN
     Indication: Pulmonary arterial hypertension
     Dosage: 10MG DAILY PO
     Route: 048
     Dates: start: 202010
  2. REMODULIN [Suspect]
     Active Substance: TREPROSTINIL
  3. AOCIRCA [Concomitant]
  4. PU\i1P CADD LEGACY [Concomitant]

REACTIONS (4)
  - Pneumonia [None]
  - Rhinovirus infection [None]
  - Chronic obstructive pulmonary disease [None]
  - Device alarm issue [None]
